FAERS Safety Report 24199573 (Version 5)
Quarter: 2025Q3

REPORT INFORMATION
  Report Type: Spontaneous
  Country: JP (occurrence: JP)
  Receive Date: 20240812
  Receipt Date: 20250918
  Transmission Date: 20251020
  Serious: Yes (Life-Threatening, Hospitalization, Other)
  Sender: ALEXION PHARMACEUTICALS
  Company Number: 2024A180259

PATIENT
  Age: 77 Year
  Sex: Female
  Weight: 46 kg

DRUGS (25)
  1. FASLODEX [Suspect]
     Active Substance: FULVESTRANT
     Indication: Breast cancer
  2. FASLODEX [Suspect]
     Active Substance: FULVESTRANT
     Indication: Breast cancer recurrent
  3. TRUQAP [Suspect]
     Active Substance: CAPIVASERTIB
     Indication: Breast cancer
     Dosage: 400 MILLIGRAM, BID
     Dates: start: 20240716, end: 20240726
  4. TRUQAP [Suspect]
     Active Substance: CAPIVASERTIB
     Dosage: 600 MILLIGRAM, QD
     Dates: start: 20240731, end: 20240801
  5. TRUQAP [Suspect]
     Active Substance: CAPIVASERTIB
     Dates: start: 20240803, end: 20240803
  6. PREDONINE [Suspect]
     Active Substance: PREDNISOLONE
     Dates: start: 20210325, end: 20240729
  7. PREDONINE [Suspect]
     Active Substance: PREDNISOLONE
  8. METHYLPREDNISOLONE [Concomitant]
     Active Substance: METHYLPREDNISOLONE
     Route: 065
     Dates: start: 20240703, end: 20240705
  9. METHYLPREDNISOLONE [Concomitant]
     Active Substance: METHYLPREDNISOLONE
     Route: 065
     Dates: start: 20240706, end: 20240706
  10. METHYLPREDNISOLONE [Concomitant]
     Active Substance: METHYLPREDNISOLONE
     Route: 065
     Dates: start: 20240707, end: 20240709
  11. SULFAMETHOXAZOLE\TRIMETHOPRIM [Concomitant]
     Active Substance: SULFAMETHOXAZOLE\TRIMETHOPRIM
  12. CALCIUM CARBONATE\CHOLECALCIFEROL\MAGNESIUM CARBONATE [Concomitant]
     Active Substance: CALCIUM CARBONATE\CHOLECALCIFEROL\MAGNESIUM CARBONATE
  13. LANSOPRAZOLE [Concomitant]
     Active Substance: LANSOPRAZOLE
  14. LANSOPRAZOLE [Concomitant]
     Active Substance: LANSOPRAZOLE
  15. SENNOSIDES [Concomitant]
     Active Substance: SENNOSIDES
  16. SENNOSIDES [Concomitant]
     Active Substance: SENNOSIDES
  17. ABEMACICLIB [Concomitant]
     Active Substance: ABEMACICLIB
     Indication: Breast cancer recurrent
     Route: 065
  18. IBRANCE [Concomitant]
     Active Substance: PALBOCICLIB
     Indication: Breast cancer recurrent
     Route: 065
  19. EVEROLIMUS [Concomitant]
     Active Substance: EVEROLIMUS
     Route: 065
  20. EXEMESTANE [Concomitant]
     Active Substance: EXEMESTANE
     Indication: Breast cancer recurrent
     Route: 065
  21. PACLITAXEL [Concomitant]
     Active Substance: PACLITAXEL
     Indication: Breast cancer recurrent
     Route: 065
  22. VINORELBINE TARTRATE [Concomitant]
     Active Substance: VINORELBINE TARTRATE
     Indication: Breast cancer recurrent
     Route: 065
  23. ERIBULIN [Concomitant]
     Active Substance: ERIBULIN
     Indication: Breast cancer recurrent
     Route: 065
  24. ENHERTU [Concomitant]
     Active Substance: FAM-TRASTUZUMAB DERUXTECAN-NXKI
     Indication: Breast cancer recurrent
     Route: 065
  25. ABEMACICLIB [Suspect]
     Active Substance: ABEMACICLIB
     Indication: Breast cancer
     Route: 065

REACTIONS (3)
  - Hyperglycaemia [Not Recovered/Not Resolved]
  - Interstitial lung disease [Unknown]
  - Condition aggravated [Unknown]

NARRATIVE: CASE EVENT DATE: 20191205
